FAERS Safety Report 20351026 (Version 1)
Quarter: 2022Q1

REPORT INFORMATION
  Report Type: Spontaneous
  Country: US (occurrence: None)
  Receive Date: 20220118
  Receipt Date: 20220118
  Transmission Date: 20220424
  Serious: No
  Sender: FDA-Public Use
  Company Number: None

PATIENT
  Age: 48 Year
  Sex: Male

DRUGS (1)
  1. CASIRIVIMAB\IMDEVIMAB [Suspect]
     Active Substance: CASIRIVIMAB\IMDEVIMAB
     Dates: start: 20220116, end: 20220116

REACTIONS (3)
  - Presyncope [None]
  - Pallor [None]
  - Feeling abnormal [None]

NARRATIVE: CASE EVENT DATE: 20220116
